FAERS Safety Report 16521986 (Version 1)
Quarter: 2019Q3

REPORT INFORMATION
  Report Type: Spontaneous
  Country: US (occurrence: US)
  Receive Date: 20190702
  Receipt Date: 20190702
  Transmission Date: 20191004
  Serious: Yes (Other)
  Sender: FDA-Public Use
  Company Number: US-PFIZER INC-2019280355

PATIENT
  Age: 86 Year
  Sex: Male

DRUGS (1)
  1. TAFAMIDIS [Suspect]
     Active Substance: TAFAMIDIS MEGLUMINE
     Dosage: UNK
     Dates: start: 2014

REACTIONS (3)
  - Atrial fibrillation [Not Recovered/Not Resolved]
  - Fatigue [Unknown]
  - Malaise [Unknown]
